FAERS Safety Report 6760223-3 (Version None)
Quarter: 2010Q2

REPORT INFORMATION
  Report Type: 
  Country: None (occurrence: None)
  Receive Date: 20100608
  Receipt Date: 20000905
  Transmission Date: 20101027
  Serious: No
  Sender: FDA-Public Use
  Company Number: 2000SUS0678

PATIENT
  Age: 26 Year
  Sex: Female

DRUGS (2)
  1. SUSTIVA [Suspect]
     Indication: HIV INFECTION
     Dosage: UNK UNK
     Route: 048
     Dates: start: 20000530, end: 20000606
  2. COMBIVIR [Concomitant]
     Route: 048
     Dates: start: 20000530

REACTIONS (1)
  - PREGNANCY [None]
